FAERS Safety Report 9124747 (Version 1)
Quarter: 2013Q1

REPORT INFORMATION
  Report Type: Spontaneous
  Country: FR (occurrence: FR)
  Receive Date: 20130227
  Receipt Date: 20130227
  Transmission Date: 20140127
  Serious: Yes (Hospitalization)
  Sender: FDA-Public Use
  Company Number: FR-B.I. PHARMACEUTICALS,INC./RIDGEFIELD-2013-FF-00555FF

PATIENT
  Age: 71 Year
  Sex: Male

DRUGS (3)
  1. PRADAXA [Suspect]
     Dosage: 220 MG
     Route: 048
     Dates: start: 20120711, end: 20121019
  2. PRADAXA [Suspect]
     Dosage: 300 MG
     Route: 048
     Dates: start: 20121020, end: 20121107
  3. PLAVIX [Suspect]
     Dosage: 75 MG
     Route: 048

REACTIONS (2)
  - Atrial thrombosis [Recovered/Resolved]
  - Drug ineffective [Recovered/Resolved]
